FAERS Safety Report 6058918-2 (Version None)
Quarter: 2009Q1

REPORT INFORMATION
  Report Type: 
  Country: None (occurrence: None)
  Receive Date: 20090130
  Receipt Date: 20090119
  Transmission Date: 20090719
  Serious: Yes (Other)
  Sender: FDA-Public Use
  Company Number: AU-PFIZER INC-2008156545

PATIENT

DRUGS (2)
  1. CYTOTEC [Suspect]
     Indication: DELIVERY
     Dosage: 800 MG, 1X/DAY
     Dates: start: 20070719, end: 20070719
  2. ERGOMETRINE MALEATE [Suspect]
     Indication: DELIVERY
     Dosage: 500 MG, 1X/DAY
     Dates: start: 20070719, end: 20070719

REACTIONS (3)
  - OXYGEN SATURATION DECREASED [None]
  - PARAESTHESIA ORAL [None]
  - PYREXIA [None]
